APPROVED DRUG PRODUCT: NORPACE CR
Active Ingredient: DISOPYRAMIDE PHOSPHATE
Strength: EQ 100MG BASE
Dosage Form/Route: CAPSULE, EXTENDED RELEASE;ORAL
Application: N018655 | Product #001
Applicant: PFIZER INC
Approved: Jul 20, 1982 | RLD: Yes | RS: No | Type: RX